FAERS Safety Report 6665336-2 (Version None)
Quarter: 2010Q1

REPORT INFORMATION
  Report Type: 
  Country: None (occurrence: None)
  Receive Date: 20100331
  Receipt Date: 20100316
  Transmission Date: 20100710
  Serious: No
  Sender: FDA-Public Use
  Company Number: SPI201000061

PATIENT
  Age: 80 Year
  Sex: Male
  Weight: 157 kg

DRUGS (5)
  1. AMITIZA [Suspect]
     Indication: CONSTIPATION
     Dosage: 24 MCG, SINGLE, ORAL
     Route: 048
     Dates: start: 20100201, end: 20100201
  2. PROTONIX [Concomitant]
  3. BENICAR [Concomitant]
  4. VYTORIN (EZELIMIBE, SIMVASTATIN) [Concomitant]
  5. FLOMAX (MORNIFLUMATE) [Concomitant]

REACTIONS (4)
  - CHEST PAIN [None]
  - COLD SWEAT [None]
  - DYSPNOEA [None]
  - SYNCOPE [None]
